FAERS Safety Report 4458290-5 (Version None)
Quarter: 2004Q3

REPORT INFORMATION
  Report Type: 
  Country: None (occurrence: None)
  Receive Date: 20040917
  Receipt Date: 20040108
  Transmission Date: 20050211
  Serious: Yes (Hospitalization, Other)
  Sender: FDA-Public Use
  Company Number: US-JNJFOC-20040101812

PATIENT
  Sex: Female

DRUGS (3)
  1. TOPAMAX [Suspect]
     Indication: BIPOLAR DISORDER
     Dosage: 400 MG, 2 IN 1 DAY, ORAL
     Route: 048
     Dates: start: 20031201
  2. SEROQUEL [Concomitant]
  3. LEXAPRO [Concomitant]

REACTIONS (2)
  - BIPOLAR DISORDER [None]
  - BLOOD BICARBONATE DECREASED [None]
